FAERS Safety Report 11622211 (Version 1)
Quarter: 2015Q4

REPORT INFORMATION
  Report Type: Spontaneous
  Country: US (occurrence: US)
  Receive Date: 20151013
  Receipt Date: 20151013
  Transmission Date: 20160304
  Serious: No
  Sender: FDA-Public Use
  Company Number: US-JNJFOC-20150404568

PATIENT
  Age: 18 Year
  Sex: Female
  Weight: 54.43 kg

DRUGS (2)
  1. WAL-PHED PE MAXIMUM STRENGTH, NON-DROWSY [Suspect]
     Active Substance: ACETAMINOPHEN\PHENYLEPHRINE HYDROCHLORIDE
     Indication: PRODUCT USED FOR UNKNOWN INDICATION
     Dosage: 2 DOSES OF 325 MG EACH
     Route: 048
     Dates: start: 20150403
  2. TYLENOL EXTRA STRENGTH [Suspect]
     Active Substance: ACETAMINOPHEN
     Indication: SINUS CONGESTION
     Route: 048
     Dates: start: 20150403, end: 20150403

REACTIONS (3)
  - Incorrect dose administered [Unknown]
  - Drug administration error [Unknown]
  - Product use issue [Unknown]

NARRATIVE: CASE EVENT DATE: 20150403
